FAERS Safety Report 16870673 (Version 1)
Quarter: 2019Q3

REPORT INFORMATION
  Report Type: Spontaneous
  Country: IT (occurrence: IT)
  Receive Date: 20190930
  Receipt Date: 20190930
  Transmission Date: 20191005
  Serious: Yes (Hospitalization)
  Sender: FDA-Public Use
  Company Number: IT-ANIPHARMA-2019-IT-000069

PATIENT
  Age: 47 Year
  Sex: Female

DRUGS (5)
  1. SERACTIL [Suspect]
     Active Substance: DEXIBUPROFEN
     Dosage: UNK
     Route: 048
     Dates: start: 20190325
  2. PARACETAMOL+TRAMADOL [Suspect]
     Active Substance: ACETAMINOPHEN\TRAMADOL
     Dosage: UNK
     Route: 048
  3. PASADEN [ETIZOLAM] [Suspect]
     Active Substance: ETIZOLAM
     Dosage: UNK
     Route: 048
     Dates: start: 20190325
  4. PARACODINA [ALTHAEA OFFICINALIS;BENZOIC ACID;DIHYDROCODEINE BITARTRATE;GRINDELIA ROBUSTA] [Suspect]
     Active Substance: DIHYDROCODEINE BITARTRATE\HERBALS
     Dosage: UNK
     Route: 048
     Dates: start: 20190325
  5. CANDESARTAN CILEXETIL. [Suspect]
     Active Substance: CANDESARTAN CILEXETIL
     Indication: PRODUCT USED FOR UNKNOWN INDICATION
     Dosage: UNK
     Route: 048
     Dates: start: 20190325

REACTIONS (2)
  - Sopor [Recovering/Resolving]
  - Substance abuse [Recovering/Resolving]

NARRATIVE: CASE EVENT DATE: 20190325
